FAERS Safety Report 9992512 (Version 2)
Quarter: 2014Q1

REPORT INFORMATION
  Report Type: Spontaneous
  Country: GB (occurrence: GB)
  Receive Date: 20140310
  Receipt Date: 20140312
  Transmission Date: 20141002
  Serious: Yes (Other)
  Sender: FDA-Public Use
  Company Number: PHFR2014GB002027

PATIENT
  Age: 68 Year
  Sex: 0

DRUGS (5)
  1. FEMARA [Suspect]
     Dosage: UNK UKN, UNK
  2. SIMVASTATIN [Concomitant]
     Dosage: UNK UKN, UNK
  3. CLOPIDOGREL [Concomitant]
     Dosage: UNK UKN, UNK
  4. BEZAFIBRATE [Concomitant]
     Dosage: UNK UKN, UNK
  5. ADCAL [Concomitant]
     Dosage: UNK UKN, UNK

REACTIONS (2)
  - Multiple sclerosis [Unknown]
  - Generalised oedema [Unknown]
